FAERS Safety Report 13670227 (Version 4)
Quarter: 2017Q3

REPORT INFORMATION
  Report Type: Spontaneous
  Country: US (occurrence: US)
  Receive Date: 20170620
  Receipt Date: 20170804
  Transmission Date: 20171127
  Serious: No
  Sender: FDA-Public Use
  Company Number: US-ASTRAZENECA-2017SE62920

PATIENT
  Sex: Female
  Weight: 98.9 kg

DRUGS (9)
  1. QVAR [Concomitant]
     Active Substance: BECLOMETHASONE DIPROPIONATE
     Indication: ASTHMA
     Dosage: TWO PUFF TWO TIMES A DAY
  2. NUVIGIL [Concomitant]
     Active Substance: ARMODAFINIL
     Indication: NARCOLEPSY
     Dosage: 250.0MG UNKNOWN
  3. XANEX [Concomitant]
     Indication: ANXIETY
     Dosage: 0.25-0.5 MG, AS REQUIRED
  4. LAMICTAL [Concomitant]
     Active Substance: LAMOTRIGINE
     Indication: POST-TRAUMATIC STRESS DISORDER
     Route: 048
  5. BUSPAR [Concomitant]
     Active Substance: BUSPIRONE HYDROCHLORIDE
     Indication: ANXIETY
     Route: 048
  6. NAPROXEN. [Concomitant]
     Active Substance: NAPROXEN
     Dosage: 200.0MG AS REQUIRED
  7. XOPENEX [Concomitant]
     Active Substance: LEVALBUTEROL HYDROCHLORIDE
     Indication: ASTHMA
     Dosage: 45.0UG UNKNOWN
  8. WOMENS MULTIVITAMIN [Concomitant]
     Dosage: DAILY
  9. BYDUREON [Suspect]
     Active Substance: EXENATIDE
     Indication: TYPE 2 DIABETES MELLITUS
     Route: 058

REACTIONS (5)
  - Injection site mass [Not Recovered/Not Resolved]
  - Needle issue [Recovering/Resolving]
  - Injection site haemorrhage [Recovering/Resolving]
  - Skin discolouration [Not Recovered/Not Resolved]
  - Underdose [Recovering/Resolving]
